FAERS Safety Report 8268830-6 (Version None)
Quarter: 2012Q2

REPORT INFORMATION
  Report Type: 
  Country: None (occurrence: None)
  Receive Date: 20120409
  Receipt Date: 20120409
  Transmission Date: 20120825
  Serious: Yes (Congenital Anomaly)
  Sender: FDA-Public Use
  Company Number: None

PATIENT
  Age: 20 Year
  Sex: Female
  Weight: 72.574 kg

DRUGS (2)
  1. DEPO-PROVERA [Suspect]
  2. DEPO SHOT [Concomitant]

REACTIONS (5)
  - VOMITING [None]
  - PRESYNCOPE [None]
  - MALAISE [None]
  - CHEST PAIN [None]
  - DYSPNOEA [None]
